FAERS Safety Report 14299002 (Version 1)
Quarter: 2017Q4

REPORT INFORMATION
  Report Type: Spontaneous
  Country: US (occurrence: US)
  Receive Date: 20171217
  Receipt Date: 20171217
  Transmission Date: 20180321
  Serious: Yes (Other)
  Sender: FDA-Public Use
  Company Number: None

PATIENT
  Age: 27 Year
  Sex: Female
  Weight: 68.4 kg

DRUGS (7)
  1. VITAMIN D [Concomitant]
     Active Substance: CHOLECALCIFEROL
  2. ELIDEL [Concomitant]
     Active Substance: PIMECROLIMUS
  3. PROAIR HFA [Suspect]
     Active Substance: ALBUTEROL SULFATE
     Indication: PNEUMONIA
     Dosage: ?          QUANTITY:2 PUFF(S);?
     Route: 055
     Dates: start: 20171113, end: 20171119
  4. BIOTIN [Concomitant]
     Active Substance: BIOTIN
  5. FISH OIL [Concomitant]
     Active Substance: FISH OIL
  6. MULTIVITAMIN [Concomitant]
     Active Substance: VITAMINS
  7. LEVAQUIN [Suspect]
     Active Substance: LEVOFLOXACIN
     Indication: PNEUMONIA
     Dosage: ?          QUANTITY:1 TABLET(S);?
     Route: 048
     Dates: start: 20171018, end: 20171027

REACTIONS (2)
  - Wheezing [None]
  - Dermatitis [None]

NARRATIVE: CASE EVENT DATE: 20171124
